FAERS Safety Report 26132146 (Version 2)
Quarter: 2025Q4

REPORT INFORMATION
  Report Type: Spontaneous
  Country: JP (occurrence: JP)
  Receive Date: 20251208
  Receipt Date: 20251229
  Transmission Date: 20260117
  Serious: Yes (Death, Hospitalization, Other)
  Sender: ABBVIE
  Company Number: JP-GSKJP-JP2025154413

PATIENT
  Age: 62 Year
  Sex: Male

DRUGS (6)
  1. BOTOX [Suspect]
     Active Substance: ONABOTULINUMTOXINA
     Indication: Muscle spasms
     Dosage: DOSE: 400 IU
     Route: 030
     Dates: start: 20250929
  2. LANSOPRAZOLE [Suspect]
     Active Substance: LANSOPRAZOLE
     Indication: Gastrooesophageal reflux disease
     Dosage: 15 MG
     Route: 048
  3. SAMSCA [Suspect]
     Active Substance: TOLVAPTAN
     Indication: Cardiac failure
     Dosage: 7.5 MG
     Route: 048
  4. LEVETIRACETAM [Concomitant]
     Active Substance: LEVETIRACETAM
     Indication: Epilepsy
     Route: 048
     Dates: end: 20251002
  5. CANDESARTAN [Concomitant]
     Active Substance: CANDESARTAN
     Indication: Hypertension
     Dosage: 2 MG
     Route: 048
     Dates: end: 20251002
  6. MOSAPRIDE [Concomitant]
     Active Substance: MOSAPRIDE
     Indication: Gastrooesophageal reflux disease
     Dosage: 15 MG
     Route: 048
     Dates: end: 20251002

REACTIONS (6)
  - Septic shock [Fatal]
  - Circulatory collapse [Fatal]
  - Shock [Fatal]
  - Pneumonia [Fatal]
  - Pyrexia [Fatal]
  - Sepsis [Fatal]

NARRATIVE: CASE EVENT DATE: 20251002
